FAERS Safety Report 5053833-5 (Version None)
Quarter: 2006Q3

REPORT INFORMATION
  Report Type: 
  Country: None (occurrence: None)
  Receive Date: 20060718
  Receipt Date: 20060630
  Transmission Date: 20061208
  Serious: Yes (Congenital Anomaly, Other)
  Sender: FDA-Public Use
  Company Number: JP-JPN-A200602391

PATIENT
  Age: 37 Year
  Sex: Female
  Weight: 68 kg

DRUGS (4)
  1. PAXIL [Suspect]
     Indication: PANIC DISORDER
     Route: 048
     Dates: end: 20060404
  2. RIZE [Suspect]
     Indication: PANIC DISORDER
     Route: 048
     Dates: start: 20060410
  3. SEPAZON [Concomitant]
     Indication: PANIC DISORDER
     Route: 048
     Dates: start: 20051125
  4. HANGE-KOBOKU-TO [Concomitant]
     Indication: PANIC DISORDER
     Dosage: 7.5G PER DAY
     Route: 048
     Dates: start: 20060206, end: 20060401

REACTIONS (8)
  - ANXIETY [None]
  - DIZZINESS [None]
  - INSOMNIA [None]
  - PALPITATIONS [None]
  - PANIC ATTACK [None]
  - STILLBIRTH [None]
  - TENSION [None]
  - VOMITING [None]
